FAERS Safety Report 6397533-8 (Version None)
Quarter: 2009Q4

REPORT INFORMATION
  Report Type: 
  Country: None (occurrence: None)
  Receive Date: 20091007
  Receipt Date: 20090923
  Transmission Date: 20100525
  Serious: Yes (Life-Threatening, Hospitalization, Disabling)
  Sender: FDA-Public Use
  Company Number: ALA_00330_2009

PATIENT
  Sex: Female
  Weight: 51.7101 kg

DRUGS (15)
  1. TRILYTE [Suspect]
     Indication: COLONOSCOPY
     Dosage: (4 LITERS ORAL)
     Route: 048
     Dates: start: 20090714, end: 20090714
  2. ASPIRIN [Concomitant]
  3. MUCINEX [Concomitant]
  4. FISH OIL [Concomitant]
  5. CINNAMON [Concomitant]
  6. FLUTICASONE [Concomitant]
  7. ACTONEL [Concomitant]
  8. HYZAAR /01284801/ [Concomitant]
  9. PREMARIN [Concomitant]
  10. TRICOR [Concomitant]
  11. CALCIUM 600 + D [Concomitant]
  12. VITAMIN D [Concomitant]
  13. FLAXSEED OIL [Concomitant]
  14. CLARITIN /00917501/ [Concomitant]
  15. ZADITOR /00495201/ [Concomitant]

REACTIONS (9)
  - ASTHENIA [None]
  - BLOOD MAGNESIUM DECREASED [None]
  - BLOOD POTASSIUM DECREASED [None]
  - BLOOD SODIUM DECREASED [None]
  - DIARRHOEA [None]
  - FEELING ABNORMAL [None]
  - MENTAL STATUS CHANGES [None]
  - RECTAL POLYP [None]
  - VOMITING [None]
